FAERS Safety Report 6398828-4 (Version None)
Quarter: 2009Q4

REPORT INFORMATION
  Report Type: 
  Country: None (occurrence: None)
  Receive Date: 20091013
  Receipt Date: 20091001
  Transmission Date: 20100525
  Serious: No
  Sender: FDA-Public Use
  Company Number: AT-WYE-G04544909

PATIENT
  Sex: Male

DRUGS (8)
  1. VENLAFAXINE HYDROCHLORIDE [Suspect]
     Dosage: DOSE UNKNOWN, FREQUENCY UNKNOWN
     Dates: start: 20010101, end: 20020101
  2. VENLAFAXINE HYDROCHLORIDE [Suspect]
     Dosage: 150 MG, FREQUENCY UKNOWN
     Dates: start: 20090401
  3. METOPROLOL TARTRATE [Concomitant]
  4. SYMBICORT [Concomitant]
  5. SIMVASTATIN [Concomitant]
  6. BERODUAL [Concomitant]
  7. DEBAX [Concomitant]
  8. ASPIRIN [Concomitant]

REACTIONS (5)
  - COUGH [None]
  - DRUG INTERACTION [None]
  - INTERSTITIAL LUNG DISEASE [None]
  - PROSTATITIS [None]
  - RESPIRATORY FAILURE [None]
